FAERS Safety Report 19027046 (Version 1)
Quarter: 2021Q1

REPORT INFORMATION
  Report Type: Spontaneous
  Country: US (occurrence: US)
  Receive Date: 20210318
  Receipt Date: 20210318
  Transmission Date: 20210420
  Serious: No
  Sender: FDA-Public Use
  Company Number: US-MYLANLABS-2021M1014691

PATIENT
  Sex: Female

DRUGS (1)
  1. CLOBAZAM ORAL SUSPENSION [Suspect]
     Active Substance: CLOBAZAM
     Indication: PRODUCT USED FOR UNKNOWN INDICATION
     Dosage: UNK

REACTIONS (3)
  - Contusion [Unknown]
  - Product package associated injury [Unknown]
  - Product container seal issue [Unknown]
